FAERS Safety Report 19835138 (Version 3)
Quarter: 2021Q4

REPORT INFORMATION
  Report Type: Spontaneous
  Country: JP (occurrence: JP)
  Receive Date: 20210915
  Receipt Date: 20211015
  Transmission Date: 20220303
  Serious: Yes (Other)
  Sender: FDA-Public Use
  Company Number: JP-FERRING-EVA202101359FERRINGPH

PATIENT
  Sex: Male
  Weight: 3.54 kg

DRUGS (1)
  1. DINOPROSTONE [Suspect]
     Active Substance: DINOPROSTONE
     Indication: Induction of cervix ripening
     Route: 064
     Dates: start: 20210524, end: 20210524

REACTIONS (1)
  - Neonatal asphyxia [Recovered/Resolved]
